FAERS Safety Report 9535929 (Version 1)
Quarter: 2013Q3

REPORT INFORMATION
  Report Type: Spontaneous
  Country: US (occurrence: None)
  Receive Date: 20130917
  Receipt Date: 20130917
  Transmission Date: 20140515
  Serious: No
  Sender: FDA-Public Use
  Company Number: None

PATIENT
  Sex: Male

DRUGS (1)
  1. ENBREL SURECLICK 50MG AMGEN INC [Suspect]
     Route: 058
     Dates: start: 20130604

REACTIONS (1)
  - Ear haemorrhage [None]
